FAERS Safety Report 18989032 (Version 2)
Quarter: 2021Q1

REPORT INFORMATION
  Report Type: Spontaneous
  Country: JP (occurrence: JP)
  Receive Date: 20210309
  Receipt Date: 20210318
  Transmission Date: 20210420
  Serious: Yes (Hospitalization, Other)
  Sender: FDA-Public Use
  Company Number: JP-JNJFOC-20210213302

PATIENT
  Age: 80 Year
  Sex: Female

DRUGS (13)
  1. VFEND [Concomitant]
     Active Substance: VORICONAZOLE
     Dosage: DOSE UNKNOWN
     Route: 065
  2. REBAMIPIDE [Concomitant]
     Active Substance: REBAMIPIDE
     Dosage: DOSE UNKNOWN
     Route: 065
  3. ALINAMIN?F [FURSULTIAMINE HYDROCHLORIDE] [Concomitant]
     Dosage: DOSE UNKNOWN
     Route: 048
  4. ERYTHROCIN [ERYTHROMYCIN] [Concomitant]
     Active Substance: ERYTHROMYCIN
     Dosage: DOSE UNKNOWN
     Route: 065
  5. CARERAM [Concomitant]
     Active Substance: IGURATIMOD
     Dosage: DOSE UNKNOWN
     Route: 048
  6. SOLETON [Concomitant]
     Active Substance: ZALTOPROFEN
     Dosage: DOSE UNKNOWN
     Route: 048
  7. RHEUMATREX [Concomitant]
     Active Substance: METHOTREXATE SODIUM
     Dosage: DOSE UNKNOWN
     Route: 048
  8. TRIMEBUTINE MALEATE [Concomitant]
     Active Substance: TRIMEBUTINE MALEATE
     Dosage: DOSE UNKNOWN?PERORAL MEDICINE
     Route: 048
  9. SIMPONI [Suspect]
     Active Substance: GOLIMUMAB
     Indication: RHEUMATOID ARTHRITIS
     Dosage: DOSE UNKNOWN
     Route: 058
  10. POLYCARBOPHIL CALCIUM [Concomitant]
     Active Substance: CALCIUM POLYCARBOPHIL
     Dosage: DOSE UNKNOWN
     Route: 048
  11. FOLIAMIN [FOLIC ACID] [Concomitant]
     Dosage: DOSE UNKNOWN
     Route: 065
  12. MAGMITT [Concomitant]
     Active Substance: MAGNESIUM OXIDE
     Dosage: DOSE UNKNOWN?PERORAL MEDICINE
     Route: 048
  13. DIQUAS [Concomitant]
     Active Substance: DIQUAFOSOL TETRASODIUM
     Dosage: DOSE UNKNOWN
     Route: 047

REACTIONS (3)
  - Femur fracture [Recovering/Resolving]
  - Bone contusion [Recovered/Resolved]
  - Osteoporosis [Unknown]

NARRATIVE: CASE EVENT DATE: 20210120
